FAERS Safety Report 9362954 (Version 1)
Quarter: 2013Q2

REPORT INFORMATION
  Report Type: Spontaneous
  Country: US (occurrence: None)
  Receive Date: 20130621
  Receipt Date: 20130621
  Transmission Date: 20140414
  Serious: Yes (Other)
  Sender: FDA-Public Use
  Company Number: None

PATIENT
  Age: 76 Year
  Sex: Female
  Weight: 64.41 kg

DRUGS (1)
  1. VALSARTAN HCTZ [Suspect]
     Indication: HYPERTENSION
     Dosage: 320/25
     Route: 048

REACTIONS (1)
  - Blood pressure increased [None]
